FAERS Safety Report 21452606 (Version 8)
Quarter: 2022Q4

REPORT INFORMATION
  Report Type: Report from Study
  Country: KR (occurrence: None)
  Receive Date: 20221013
  Receipt Date: 20221125
  Transmission Date: 20230112
  Serious: Yes (Life-Threatening, Hospitalization)
  Sender: FDA-Public Use
  Company Number: KR-ROCHE-3196577

PATIENT
  Age: 79 Year
  Sex: Female
  Weight: 55.7 kg

DRUGS (37)
  1. ATEZOLIZUMAB [Suspect]
     Active Substance: ATEZOLIZUMAB
     Indication: Gallbladder cancer
     Dosage: START DATE OF MOST RECENT DOSE OF STUDY DRUG PRIOR TO AE AND SAE 20-SEP-2022.
     Route: 041
     Dates: start: 20210531
  2. BEVACIZUMAB [Suspect]
     Active Substance: BEVACIZUMAB
     Indication: Gallbladder cancer
     Dosage: START DATE OF MOST RECENT DOSE OF STUDY DRUG PRIOR TO AE AND SAE ON 20-SEP-2022.
     Route: 042
     Dates: start: 20210531
  3. CISPLATIN [Suspect]
     Active Substance: CISPLATIN
     Indication: Gallbladder cancer
     Dosage: START DATE OF MOST RECENT DOSE OF STUDY DRUG PRIOR TO AE AND SAE ON 07-DEC-2021 AT 36.75 MG
     Route: 042
     Dates: start: 20210531
  4. GEMCITABINE [Suspect]
     Active Substance: GEMCITABINE
     Indication: Gallbladder cancer
     Dosage: START DATE OF MOST RECENT DOSE OF STUDY DRUG PRIOR TO AE AND SAE 07-DEC-2021 AT 1470 MG
     Route: 042
     Dates: start: 20210531
  5. CHOLINE ALFOSCERATE [Concomitant]
     Active Substance: CHOLINE ALFOSCERATE
     Dates: start: 2018, end: 20221008
  6. ROSUVASTATIN [Concomitant]
     Active Substance: ROSUVASTATIN
     Indication: Dyslipidaemia
     Dates: start: 2014, end: 20221108
  7. ACETAMINOPHEN [Concomitant]
     Active Substance: ACETAMINOPHEN
     Indication: Abdominal pain
     Dosage: NEXT DOSE ON 08/OCT/2022
     Dates: start: 20210611, end: 20221008
  8. PREGABALIN [Concomitant]
     Active Substance: PREGABALIN
     Dates: start: 20210611, end: 20221008
  9. NORVASC [Concomitant]
     Active Substance: AMLODIPINE BESYLATE
     Indication: Hypertension
     Route: 048
     Dates: start: 20210831
  10. PROBIOTICS NOS [Concomitant]
     Active Substance: PROBIOTICS NOS
     Indication: Constipation
     Dosage: 1 CAP
     Route: 048
     Dates: start: 20220607
  11. MAGNESIUM OXIDE [Concomitant]
     Active Substance: MAGNESIUM OXIDE
     Indication: Constipation
     Dosage: 1 CAP
     Route: 048
     Dates: start: 20220607
  12. CALCIUM POLYCARBOPHIL [Concomitant]
     Active Substance: CALCIUM POLYCARBOPHIL
     Indication: Constipation
     Dates: start: 20220719, end: 20221008
  13. LOSARTAN POTASSIUM [Concomitant]
     Active Substance: LOSARTAN POTASSIUM
     Indication: Hypertension
     Dates: start: 2016
  14. TRAMADOL [Concomitant]
     Active Substance: TRAMADOL
     Dates: start: 20221007, end: 20221025
  15. HEPRIN [Concomitant]
     Indication: Prophylaxis
     Dates: start: 20221007, end: 20221028
  16. CEFTRIAXONE [Concomitant]
     Active Substance: CEFTRIAXONE
     Indication: Pyrexia
     Dates: start: 20221008, end: 20221025
  17. ACETAMINOPHEN [Concomitant]
     Active Substance: ACETAMINOPHEN
     Indication: Pyrexia
     Dates: start: 20221008, end: 20221026
  18. PANTOPRAZOLE SODIUM [Concomitant]
     Active Substance: PANTOPRAZOLE SODIUM
     Dates: start: 20221009, end: 20221011
  19. HEXAMEDIN [Concomitant]
     Indication: Stomatitis
     Dates: start: 20221009
  20. PROPACETAMOL [Concomitant]
     Active Substance: PROPACETAMOL
     Indication: Pyrexia
     Dates: start: 20221010, end: 20221011
  21. MOSAONE [Concomitant]
     Indication: Dyspepsia
     Dates: start: 20221013, end: 20221016
  22. MYTONIN [Concomitant]
     Indication: Prophylaxis
     Dates: start: 20221013, end: 20221020
  23. HARNAL [Concomitant]
     Active Substance: TAMSULOSIN HYDROCHLORIDE
     Indication: Prophylaxis
     Dates: start: 20221013, end: 20221014
  24. TANTUM [Concomitant]
     Active Substance: BENZYDAMINE HYDROCHLORIDE
     Indication: Stomatitis
     Dates: start: 20221013
  25. KAMISTAD [LIDOCAINE HYDROCHLORIDE;MATRICARIA CHAMOMILLA FLOWER] [Concomitant]
     Indication: Stomatitis
     Dates: start: 20221014, end: 20221115
  26. MEPERIDINE [Concomitant]
     Active Substance: MEPERIDINE
     Indication: Pyrexia
     Dates: start: 20221015, end: 20221015
  27. MOSAPRIDE CITRATE [Concomitant]
     Active Substance: MOSAPRIDE CITRATE
     Indication: Dyspepsia
     Dates: start: 20221017, end: 20221028
  28. MOVELOXIN [Concomitant]
     Indication: Pyrexia
     Dates: start: 20221017, end: 20221019
  29. MOVELOXIN [Concomitant]
     Dates: start: 20221026, end: 20221108
  30. NYSTATIN [Concomitant]
     Active Substance: NYSTATIN
     Indication: Stomatitis
     Dates: start: 20221017
  31. DEXAMETHASONE [Concomitant]
     Active Substance: DEXAMETHASONE
     Indication: Stomatitis
     Dates: start: 20221017, end: 20221027
  32. MEGESTROL ACETATE [Concomitant]
     Active Substance: MEGESTROL ACETATE
     Indication: Decreased appetite
     Dates: start: 20221019, end: 20221026
  33. CELEBREX [Concomitant]
     Active Substance: CELECOXIB
     Indication: Osteoporosis
     Dates: start: 20221027, end: 20221115
  34. PIROXICAM [Concomitant]
     Active Substance: PIROXICAM
     Indication: Osteoporosis
     Dates: start: 20221024, end: 20221026
  35. TRESIBA [Concomitant]
     Active Substance: INSULIN DEGLUDEC
     Indication: Diabetes mellitus
     Dosage: 300 IU/3ML
     Route: 058
     Dates: start: 20221011
  36. APIDRA SOLOSTAR [Concomitant]
     Active Substance: INSULIN GLULISINE
     Indication: Diabetes mellitus
     Dosage: 300 IU/3ML
     Route: 058
     Dates: start: 20221011
  37. DIABEX [Concomitant]
     Active Substance: METFORMIN HYDROCHLORIDE
     Indication: Diabetes mellitus
     Dates: start: 20221020

REACTIONS (1)
  - Hyperglycaemia [Recovered/Resolved]

NARRATIVE: CASE EVENT DATE: 20221006
